FAERS Safety Report 5446379-3 (Version None)
Quarter: 2007Q3

REPORT INFORMATION
  Report Type: 
  Country: None (occurrence: None)
  Receive Date: 20070907
  Receipt Date: 20070831
  Transmission Date: 20080115
  Serious: Yes (Hospitalization)
  Sender: FDA-Public Use
  Company Number: B0486019A

PATIENT
  Age: 78 Year
  Sex: Male

DRUGS (5)
  1. AUGMENTIN '125' [Suspect]
     Indication: ARTHRALGIA
     Route: 048
     Dates: start: 20070312, end: 20070319
  2. LORNOXICAM [Suspect]
     Indication: BACK PAIN
     Route: 048
     Dates: start: 20050101, end: 20070228
  3. VALSARTAN [Concomitant]
     Indication: HYPERTENSION
     Dosage: 40MG PER DAY
     Route: 048
     Dates: end: 20070328
  4. HYDROCHLOROTHIAZIDE [Concomitant]
     Indication: HYPERTENSION
     Dosage: 100MG PER DAY
     Route: 048
     Dates: end: 20070328
  5. AMIODARONE HYDROCHLORIDE [Concomitant]
     Dosage: 200MG PER DAY
     Route: 048
     Dates: end: 20070328

REACTIONS (7)
  - ANGIOEDEMA [None]
  - ASTHENIA [None]
  - CHOLESTASIS [None]
  - CHOLURIA [None]
  - FAECES DISCOLOURED [None]
  - JAUNDICE CHOLESTATIC [None]
  - PRURITUS [None]
